FAERS Safety Report 4898965-7 (Version None)
Quarter: 2006Q1

REPORT INFORMATION
  Report Type: 
  Country: None (occurrence: None)
  Receive Date: 20060202
  Receipt Date: 20060124
  Transmission Date: 20060701
  Serious: Yes (Other)
  Sender: FDA-Public Use
  Company Number: US-JNJFOC-20060105238

PATIENT
  Sex: Male
  Weight: 86.18 kg

DRUGS (5)
  1. DURAGESIC-100 [Suspect]
     Route: 062
     Dates: start: 20020101
  2. DURAGESIC-100 [Suspect]
     Route: 062
     Dates: start: 20020101
  3. DURAGESIC-100 [Suspect]
     Route: 062
     Dates: start: 20020101
  4. DURAGESIC-100 [Suspect]
     Route: 062
     Dates: start: 20020101
  5. LISINOPRIL [Concomitant]
     Indication: HYPERTENSION
     Route: 048
     Dates: start: 19980101

REACTIONS (8)
  - BLOOD TESTOSTERONE DECREASED [None]
  - CHILLS [None]
  - CONTUSION [None]
  - DIABETES MELLITUS NON-INSULIN-DEPENDENT [None]
  - DIARRHOEA [None]
  - HYPERHIDROSIS [None]
  - SLEEP APNOEA SYNDROME [None]
  - THERAPEUTIC RESPONSE DECREASED [None]
